FAERS Safety Report 12951136 (Version 13)
Quarter: 2017Q3

REPORT INFORMATION
  Report Type: Report from Study
  Country: JP (occurrence: JP)
  Receive Date: 20161117
  Receipt Date: 20170910
  Transmission Date: 20171127
  Serious: Yes (Death, Life-Threatening, Hospitalization, Other)
  Sender: FDA-Public Use
  Company Number: JP-AMGEN-JPNCT2016137253

PATIENT
  Age: 77 Year
  Sex: Male
  Weight: 42.8 kg

DRUGS (30)
  1. CALCIUM LEVOFOLINATE [Suspect]
     Active Substance: LEVOLEUCOVORIN CALCIUM
     Indication: METASTASES TO LIVER
     Dosage: 100 MG, Q2WEEKS
     Route: 041
     Dates: start: 20161025, end: 20161025
  2. FLUOROURACIL. [Suspect]
     Active Substance: FLUOROURACIL
     Dosage: 200 MG/M2, Q2WK
     Route: 040
     Dates: start: 20161025, end: 20161025
  3. FLUOROURACIL. [Suspect]
     Active Substance: FLUOROURACIL
     Dosage: 2000 MG, Q2WEEKS
     Route: 041
     Dates: start: 20161206, end: 20161206
  4. BETAMETHASONE VALERATE. [Concomitant]
     Active Substance: BETAMETHASONE VALERATE
     Dosage: UNK
     Route: 062
     Dates: start: 20161206
  5. PANITUMUMAB [Suspect]
     Active Substance: PANITUMUMAB
     Indication: METASTASIS
     Dosage: 280 MG, Q2WK
     Route: 041
     Dates: start: 20161025, end: 20161025
  6. YOKUKANSAN [Suspect]
     Active Substance: HERBALS
     Indication: DEMENTIA
     Dosage: UNK
     Route: 048
     Dates: start: 20161110, end: 20161210
  7. MIYA-BM [Concomitant]
     Active Substance: CLOSTRIDIUM BUTYRICUM SPORES STRAIN M-55
     Dosage: 1 DF, TID
     Route: 048
     Dates: end: 20161210
  8. PANITUMUMAB [Suspect]
     Active Substance: PANITUMUMAB
     Indication: METASTASES TO LUNG
     Dosage: 280 MG, Q2WK
     Route: 041
     Dates: start: 20160920, end: 20160920
  9. PANITUMUMAB [Suspect]
     Active Substance: PANITUMUMAB
     Indication: METASTASES TO LIVER
     Dosage: 200 MG, Q2WK
     Route: 041
     Dates: start: 20161206, end: 20161206
  10. OXALIPLATIN. [Suspect]
     Active Substance: OXALIPLATIN
     Indication: METASTASIS
     Dosage: 70 MG, Q2WEEKS
     Route: 041
     Dates: start: 20161206, end: 20161206
  11. CALCIUM LEVOFOLINATE [Suspect]
     Active Substance: LEVOLEUCOVORIN CALCIUM
     Indication: METASTASIS
     Dosage: 100 MG, Q2WEEKS
     Route: 041
     Dates: start: 20161206, end: 20161206
  12. FLUOROURACIL. [Suspect]
     Active Substance: FLUOROURACIL
     Dosage: 2000 MG/M2, Q2WK
     Route: 041
     Dates: start: 20161025, end: 20161025
  13. MIYA-BM [Concomitant]
     Active Substance: CLOSTRIDIUM BUTYRICUM SPORES STRAIN M-55
     Indication: PROPHYLAXIS
     Dosage: 1 DF, TID
     Route: 048
     Dates: start: 20160816, end: 20161103
  14. FLUOROURACIL. [Suspect]
     Active Substance: FLUOROURACIL
     Indication: METASTASES TO LUNG
     Dosage: 3500 MG, Q2WEEKS
     Route: 041
     Dates: start: 20160802, end: 20160823
  15. FLUOROURACIL. [Suspect]
     Active Substance: FLUOROURACIL
     Indication: METASTASIS
     Dosage: 3500 MG, Q2WEEKS
     Route: 041
     Dates: start: 20160920, end: 20160920
  16. RABEPRAZOLE SODIUM. [Concomitant]
     Active Substance: RABEPRAZOLE SODIUM
     Indication: PROPHYLAXIS
     Dosage: 10 MG, QD
     Route: 048
     Dates: start: 20160802, end: 20161103
  17. RABEPRAZOLE SODIUM. [Concomitant]
     Active Substance: RABEPRAZOLE SODIUM
     Dosage: 10 MG, QD
     Route: 048
     Dates: start: 20161114, end: 20161210
  18. BETAMETHASONE VALERATE. [Concomitant]
     Active Substance: BETAMETHASONE VALERATE
     Indication: PROPHYLAXIS
     Dosage: UNK
     Route: 062
     Dates: start: 20160816
  19. PANITUMUMAB [Suspect]
     Active Substance: PANITUMUMAB
     Indication: COLON CANCER
     Dosage: 280 MG, Q2WK
     Route: 041
     Dates: start: 20160802, end: 20160823
  20. OXALIPLATIN. [Suspect]
     Active Substance: OXALIPLATIN
     Indication: COLON CANCER
     Dosage: 120 MG, Q2WEEKS
     Route: 041
     Dates: start: 20160802, end: 20160823
  21. FLUOROURACIL. [Suspect]
     Active Substance: FLUOROURACIL
     Dosage: 200 MG, Q2WK
     Route: 040
     Dates: start: 20161206, end: 20161206
  22. OMEPRAZOLE SODIUM [Concomitant]
     Active Substance: OMEPRAZOLE SODIUM
     Indication: PROPHYLAXIS
     Dosage: 20 MG, BID
     Route: 041
     Dates: start: 20161104, end: 20161109
  23. OXALIPLATIN. [Suspect]
     Active Substance: OXALIPLATIN
     Indication: METASTASES TO LUNG
     Dosage: 120 MG, Q2WEEKS
     Route: 041
     Dates: start: 20160920, end: 20160920
  24. OXALIPLATIN. [Suspect]
     Active Substance: OXALIPLATIN
     Indication: METASTASES TO LIVER
     Dosage: 65 MG/M2, Q2WEEKS
     Route: 041
     Dates: start: 20161025, end: 20161025
  25. FLUOROURACIL. [Suspect]
     Active Substance: FLUOROURACIL
     Indication: COLON CANCER
     Dosage: 550 MG, Q2WK
     Route: 040
     Dates: start: 20160802, end: 20160823
  26. CLARITHROMYCIN. [Concomitant]
     Active Substance: CLARITHROMYCIN
     Indication: PROPHYLAXIS
     Dosage: 200 MG, QD
     Route: 048
     Dates: start: 20160802, end: 20161103
  27. CALCIUM LEVOFOLINATE [Suspect]
     Active Substance: LEVOLEUCOVORIN CALCIUM
     Indication: COLON CANCER
     Dosage: 275 MG, Q2WEEKS
     Route: 041
     Dates: start: 20160802, end: 20160823
  28. CALCIUM LEVOFOLINATE [Suspect]
     Active Substance: LEVOLEUCOVORIN CALCIUM
     Indication: METASTASES TO LUNG
     Dosage: 275 MG, Q2WEEKS
     Route: 041
     Dates: start: 20160920, end: 20160920
  29. FLUOROURACIL. [Suspect]
     Active Substance: FLUOROURACIL
     Indication: METASTASES TO LIVER
     Dosage: 550 MG, Q2WK
     Route: 040
     Dates: start: 20160920, end: 20160920
  30. CLARITHROMYCIN. [Concomitant]
     Active Substance: CLARITHROMYCIN
     Dosage: 200 MG, QD
     Route: 048
     Dates: start: 20161206, end: 20161210

REACTIONS (13)
  - Stomatitis [Recovered/Resolved]
  - Sepsis [Fatal]
  - Anaemia [Recovering/Resolving]
  - Platelet count decreased [Not Recovered/Not Resolved]
  - Fatigue [Unknown]
  - Decreased appetite [Recovered/Resolved]
  - Peritonitis [Fatal]
  - Nausea [Recovering/Resolving]
  - Dry skin [Recovered/Resolved]
  - Weight decreased [Recovered/Resolved]
  - Neutrophil count decreased [Recovering/Resolving]
  - Dermatitis acneiform [Recovered/Resolved]
  - Hypokalaemia [Unknown]

NARRATIVE: CASE EVENT DATE: 20160812
